FAERS Safety Report 9580659 (Version 1)
Quarter: 2013Q3

REPORT INFORMATION
  Report Type: Spontaneous
  Country: US (occurrence: None)
  Receive Date: 20130930
  Receipt Date: 20130930
  Transmission Date: 20140515
  Serious: Yes (Hospitalization, Other)
  Sender: FDA-Public Use
  Company Number: 2013-1542

PATIENT
  Age: 48 Year
  Sex: Female

DRUGS (1)
  1. KYPROLIS [Suspect]
     Indication: MEDICATION ERROR
     Route: 042
     Dates: start: 20130916, end: 20130916

REACTIONS (7)
  - Medication error [None]
  - Wrong drug administered [None]
  - Hypotension [None]
  - Chills [None]
  - Renal failure [None]
  - Lymphopenia [None]
  - Platelet count decreased [None]
